FAERS Safety Report 7981752-0 (Version None)
Quarter: 2011Q4

REPORT INFORMATION
  Report Type: 
  Country: None (occurrence: None)
  Receive Date: 20111215
  Receipt Date: 20111207
  Transmission Date: 20120403
  Serious: Yes (Other)
  Sender: FDA-Public Use
  Company Number: US-JNJFOC-20111202235

PATIENT
  Age: 92 Year
  Sex: Male
  Weight: 53.07 kg

DRUGS (4)
  1. ZYRTEC [Suspect]
     Indication: MULTIPLE ALLERGIES
     Dosage: EVERY OTHER DAY FOR 10 MONTHS. DRUG STOPPED IN OCTOBER
     Route: 048
     Dates: end: 20111001
  2. ARICEPT [Concomitant]
     Indication: PRODUCT USED FOR UNKNOWN INDICATION
     Route: 065
  3. MANY OTHER UNSPECIFIED MEDICATIONS [Concomitant]
     Indication: PRODUCT USED FOR UNKNOWN INDICATION
     Route: 065
  4. ZYRTEC [Suspect]
     Indication: RHINORRHOEA
     Dosage: EVERY OTHER DAY FOR 10 MONTHS. DRUG STOPPED IN OCTOBER
     Route: 048
     Dates: end: 20111001

REACTIONS (2)
  - DEMENTIA [None]
  - WRONG DRUG ADMINISTERED [None]
